FAERS Safety Report 17172013 (Version 2)
Quarter: 2020Q1

REPORT INFORMATION
  Report Type: Report from Study
  Country: US (occurrence: US)
  Receive Date: 20191218
  Receipt Date: 20200107
  Transmission Date: 20200409
  Serious: Yes (Other)
  Sender: FDA-Public Use
  Company Number: US-PFIZER INC-2019495774

PATIENT
  Age: 59 Year
  Sex: Female

DRUGS (3)
  1. XELJANZ [Suspect]
     Active Substance: TOFACITINIB CITRATE
     Indication: RHEUMATOID ARTHRITIS
     Dosage: 5 MG, 2X/DAY
     Route: 048
  2. XELJANZ XR [Suspect]
     Active Substance: TOFACITINIB CITRATE
     Dosage: 11 MG, DAILY
     Route: 048
     Dates: start: 20200102
  3. XELJANZ XR [Suspect]
     Active Substance: TOFACITINIB CITRATE
     Indication: RHEUMATOID ARTHRITIS
     Dosage: 11 MG, DAILY
     Route: 048
     Dates: start: 201909, end: 20191127

REACTIONS (8)
  - Clostridium difficile infection [Unknown]
  - Respiratory symptom [Unknown]
  - Product use issue [Unknown]
  - Fibromyalgia [Unknown]
  - Hypoglycaemia [Unknown]
  - Irritable bowel syndrome [Unknown]
  - Immune system disorder [Unknown]
  - Influenza [Unknown]
